FAERS Safety Report 9241013 (Version 1)
Quarter: 2013Q1

REPORT INFORMATION
  Report Type: Spontaneous
  Country: US (occurrence: None)
  Receive Date: 20121120
  Receipt Date: 20121120
  Transmission Date: 20140127
  Serious: No
  Sender: FDA-Public Use
  Company Number: 1000039434

PATIENT
  Age: 48 Year
  Sex: Female

DRUGS (6)
  1. VIIBRYD [Suspect]
     Indication: DEPRESSION
     Route: 048
     Dates: start: 201209
  2. NEURONTIN (GABAPENTIN) (GABAPENTIN) [Concomitant]
  3. MOBIC (MELOXICAM) (MELOXICAM) [Concomitant]
  4. FLEXERIL (CYCLOBENZAPRINE) (CYCLOBENZAPRINE) [Concomitant]
  5. ATIVAN (LORAZEPAM) (LORAZEPAM) [Concomitant]
  6. SYNTHROID (LEVOTHYROXINE SODIUM) (LEVOTHYROXINE SODIUM0 [Concomitant]

REACTIONS (4)
  - Nausea [None]
  - Paraesthesia [None]
  - Hypoaesthesia [None]
  - Burning feet syndrome [None]
